FAERS Safety Report 5797127-9 (Version None)
Quarter: 2008Q3

REPORT INFORMATION
  Report Type: 
  Country: None (occurrence: None)
  Receive Date: 20080701
  Receipt Date: 20080620
  Transmission Date: 20090109
  Serious: Yes (Hospitalization)
  Sender: FDA-Public Use
  Company Number: PHHY2008ES11489

PATIENT

DRUGS (3)
  1. TOBI [Suspect]
     Dosage: UNK
     Dates: start: 20080526
  2. PROCORALAN [Concomitant]
  3. VENTOLIN [Concomitant]

REACTIONS (4)
  - ASTHENIA [None]
  - BRONCHOSPASM [None]
  - CARDIOPULMONARY FAILURE [None]
  - TACHYCARDIA [None]
